FAERS Safety Report 21477414 (Version 3)
Quarter: 2022Q4

REPORT INFORMATION
  Report Type: Spontaneous
  Country: JP (occurrence: JP)
  Receive Date: 20221019
  Receipt Date: 20221114
  Transmission Date: 20230112
  Serious: Yes (Other)
  Sender: FDA-Public Use
  Company Number: JP-ORGANON-O2210JPN000207J

PATIENT
  Age: 13 Year
  Sex: Female

DRUGS (4)
  1. DESLORATADINE [Suspect]
     Active Substance: DESLORATADINE
     Indication: Dermatitis atopic
     Dosage: 5 MILLIGRAM, QD
     Route: 048
     Dates: start: 20220316, end: 20220414
  2. MONTELUKAST SODIUM [Suspect]
     Active Substance: MONTELUKAST SODIUM
     Indication: Dermatitis atopic
     Dosage: 5 MILLIGRAM, QD
     Route: 048
     Dates: start: 20220316, end: 20220623
  3. EPINASTINE HYDROCHLORIDE [Suspect]
     Active Substance: EPINASTINE HYDROCHLORIDE
     Indication: Dermatitis atopic
     Dosage: 20 MILLIGRAM, QD
     Route: 048
     Dates: start: 20220316, end: 20220829
  4. BETAMETHASONE\DEXCHLORPHENIRAMINE MALEATE [Concomitant]
     Active Substance: BETAMETHASONE\DEXCHLORPHENIRAMINE MALEATE
     Indication: Dermatitis atopic
     Dosage: UNK
     Route: 048
     Dates: start: 2016

REACTIONS (1)
  - Alopecia totalis [Not Recovered/Not Resolved]

NARRATIVE: CASE EVENT DATE: 20220316
